FAERS Safety Report 16001773 (Version 2)
Quarter: 2020Q1

REPORT INFORMATION
  Report Type: Spontaneous
  Country: US (occurrence: US)
  Receive Date: 20190225
  Receipt Date: 20200317
  Transmission Date: 20200409
  Serious: No
  Sender: FDA-Public Use
  Company Number: US-ALLERGAN-1905452US

PATIENT
  Age: 76 Year
  Sex: Female

DRUGS (3)
  1. LYRICA [Concomitant]
     Active Substance: PREGABALIN
  2. NORCO [Suspect]
     Active Substance: ACETAMINOPHEN\HYDROCODONE BITARTRATE
     Indication: PAIN
     Dosage: UNK UNK, PRN
     Route: 065
     Dates: start: 20190104
  3. LOPAMAX [Concomitant]

REACTIONS (6)
  - Drug ineffective [Unknown]
  - Back pain [Recovering/Resolving]
  - Headache [Unknown]
  - Musculoskeletal stiffness [Unknown]
  - Neck pain [Recovering/Resolving]
  - Product complaint [Unknown]

NARRATIVE: CASE EVENT DATE: 201901
